FAERS Safety Report 17447324 (Version 3)
Quarter: 2023Q1

REPORT INFORMATION
  Report Type: Spontaneous
  Country: SI (occurrence: SI)
  Receive Date: 20200221
  Receipt Date: 20230301
  Transmission Date: 20230417
  Serious: Yes (Other)
  Sender: FDA-Public Use
  Company Number: SI-NOVARTISPH-NVSC2020SI044854

PATIENT
  Age: 59 Year
  Sex: Female

DRUGS (5)
  1. LETROZOLE [Suspect]
     Active Substance: LETROZOLE
     Indication: Breast cancer metastatic
     Dosage: 2.5 MG, QD
     Route: 065
     Dates: start: 201808, end: 20181113
  2. LETROZOLE [Suspect]
     Active Substance: LETROZOLE
     Indication: Metastases to bone
  3. RIBOCICLIB [Suspect]
     Active Substance: RIBOCICLIB
     Indication: Breast cancer metastatic
     Dosage: 600 MG (PER DAY FOR 3 WEEKS, THEN 1 WEEK BREAK)
     Route: 065
     Dates: start: 201808, end: 20181107
  4. RIBOCICLIB [Suspect]
     Active Substance: RIBOCICLIB
     Indication: Metastases to bone
  5. DENOSUMAB [Concomitant]
     Active Substance: DENOSUMAB
     Indication: Product used for unknown indication
     Dosage: 120 MG, QMO
     Route: 058
     Dates: start: 201808, end: 20181113

REACTIONS (8)
  - Liver disorder [Recovered/Resolved]
  - Liver injury [Recovered/Resolved]
  - Decreased appetite [Recovered/Resolved]
  - Jaundice [Recovered/Resolved]
  - Fatigue [Recovered/Resolved]
  - Weight decreased [Recovered/Resolved]
  - Venoocclusive liver disease [Recovered/Resolved]
  - Hepatic failure [Unknown]

NARRATIVE: CASE EVENT DATE: 20181107
